FAERS Safety Report 7759285-6 (Version None)
Quarter: 2011Q3

REPORT INFORMATION
  Report Type: 
  Country: None (occurrence: None)
  Receive Date: 20110915
  Receipt Date: 20110913
  Transmission Date: 20111222
  Serious: Yes (Death)
  Sender: FDA-Public Use
  Company Number: PET2-NO-1108S-0002

PATIENT
  Age: 59 Year
  Sex: Male

DRUGS (1)
  1. FLUDEOXYGLUCOSE [Suspect]
     Indication: PULMONARY MASS
     Dosage: 191 MBQ, SINGLE DOSE, INTRAVENOUS
     Route: 042
     Dates: start: 20110714, end: 20110714

REACTIONS (1)
  - DEATH [None]
